FAERS Safety Report 8279581-6 (Version None)
Quarter: 2012Q2

REPORT INFORMATION
  Report Type: 
  Country: None (occurrence: None)
  Receive Date: 20120412
  Receipt Date: 20120222
  Transmission Date: 20120825
  Serious: Yes (Other)
  Sender: FDA-Public Use
  Company Number: US-ASTRAZENECA-2012SE12209

PATIENT
  Age: 68 Year
  Sex: Male
  Weight: 102.1 kg

DRUGS (8)
  1. TOPROL-XL [Concomitant]
  2. ZETIA [Concomitant]
  3. LIPITOR [Concomitant]
  4. KEPPRA [Concomitant]
  5. VIMPAT [Concomitant]
  6. NEXIUM [Suspect]
     Route: 048
  7. NITROSPAN [Concomitant]
  8. COZAAR [Concomitant]

REACTIONS (1)
  - CONVULSION [None]
